FAERS Safety Report 14873011 (Version 1)
Quarter: 2018Q2

REPORT INFORMATION
  Report Type: Spontaneous
  Country: ES (occurrence: ES)
  Receive Date: 20180510
  Receipt Date: 20180510
  Transmission Date: 20180711
  Serious: Yes (Hospitalization)
  Sender: FDA-Public Use
  Company Number: ES-UNICHEM PHARMACEUTICALS (USA) INC-UCM201805-000117

PATIENT
  Age: 24 Year
  Sex: Female

DRUGS (4)
  1. TOPIRAMATE. [Suspect]
     Active Substance: TOPIRAMATE
  2. DULOXETINE. [Suspect]
     Active Substance: DULOXETINE
  3. CLORAZEPATE [Suspect]
     Active Substance: CLORAZEPATE DIPOTASSIUM
  4. QUETIAPINE. [Suspect]
     Active Substance: QUETIAPINE

REACTIONS (4)
  - Intentional overdose [Recovered/Resolved]
  - Mydriasis [Recovered/Resolved]
  - Coma blister [Recovered/Resolved]
  - Depressed level of consciousness [Recovered/Resolved]
